FAERS Safety Report 13359982 (Version 1)
Quarter: 2017Q1

REPORT INFORMATION
  Report Type: Report from Study
  Country: US (occurrence: US)
  Receive Date: 20170322
  Receipt Date: 20170322
  Transmission Date: 20170429
  Serious: Yes (Other)
  Sender: FDA-Public Use
  Company Number: US-INDIVIOR LIMITED-INDV-099793-2017

PATIENT
  Age: 29 Year
  Sex: Female

DRUGS (6)
  1. SUBOXONE [Suspect]
     Active Substance: BUPRENORPHINE HYDROCHLORIDE\NALOXONE HYDROCHLORIDE
     Indication: PRODUCT USED FOR UNKNOWN INDICATION
     Dosage: UNK
     Route: 065
  2. RITALIN [Concomitant]
     Active Substance: METHYLPHENIDATE HYDROCHLORIDE
     Indication: PRODUCT USED FOR UNKNOWN INDICATION
     Dosage: UNK
     Route: 065
  3. SUBOXONE [Suspect]
     Active Substance: BUPRENORPHINE HYDROCHLORIDE\NALOXONE HYDROCHLORIDE
     Indication: DRUG DEPENDENCE
     Dosage: UNK
     Route: 065
  4. SUBOXONE [Suspect]
     Active Substance: BUPRENORPHINE HYDROCHLORIDE\NALOXONE HYDROCHLORIDE
     Dosage: 24MG A DAY
     Route: 065
  5. SUBOXONE [Suspect]
     Active Substance: BUPRENORPHINE HYDROCHLORIDE\NALOXONE HYDROCHLORIDE
     Dosage: CUTTING FILM TO TAKE EVERY HOUR, UNK
     Route: 065
  6. XANAX [Concomitant]
     Active Substance: ALPRAZOLAM
     Indication: PRODUCT USED FOR UNKNOWN INDICATION
     Dosage: UNK
     Route: 065

REACTIONS (32)
  - Haematuria [Unknown]
  - Suicidal ideation [Unknown]
  - Palpitations [Unknown]
  - Chills [Unknown]
  - Decreased appetite [Unknown]
  - Insomnia [Unknown]
  - Pain in extremity [Unknown]
  - Throat tightness [Unknown]
  - Intentional product misuse [Unknown]
  - Chest discomfort [Unknown]
  - Pharyngeal oedema [Unknown]
  - Weight decreased [Unknown]
  - Haematochezia [Unknown]
  - Headache [Unknown]
  - Yawning [Unknown]
  - Intentional underdose [Unknown]
  - Bradycardia [Unknown]
  - Blood pressure decreased [Unknown]
  - Anosmia [Unknown]
  - Ageusia [Unknown]
  - Hypoacusis [Unknown]
  - Vision blurred [Unknown]
  - Diarrhoea [Unknown]
  - Rhinorrhoea [Unknown]
  - Rash [Unknown]
  - Feeling of body temperature change [Unknown]
  - Product preparation error [Unknown]
  - Hypersensitivity [Unknown]
  - Blood pressure increased [Unknown]
  - Nausea [Unknown]
  - Myalgia [Unknown]
  - Drug ineffective [Unknown]

NARRATIVE: CASE EVENT DATE: 201612
